FAERS Safety Report 11589093 (Version 1)
Quarter: 2015Q4

REPORT INFORMATION
  Report Type: Spontaneous
  Country: US (occurrence: US)
  Receive Date: 20151002
  Receipt Date: 20151002
  Transmission Date: 20160304
  Serious: No
  Sender: FDA-Public Use
  Company Number: US-PFIZER INC-2015330449

PATIENT
  Age: 9 Year
  Sex: Female

DRUGS (1)
  1. QUILLIVANT XR [Suspect]
     Active Substance: METHYLPHENIDATE HYDROCHLORIDE
     Dosage: 20MG/4ML
     Route: 048

REACTIONS (4)
  - Feeling abnormal [Unknown]
  - Mood altered [Unknown]
  - Aggression [Unknown]
  - Anger [Unknown]
